FAERS Safety Report 8661689 (Version 4)
Quarter: 2013Q3

REPORT INFORMATION
  Report Type: Spontaneous
  Country: JP (occurrence: None)
  Receive Date: 20120626
  Receipt Date: 20130815
  Transmission Date: 20140515
  Serious: Yes (Death, Hospitalization, Other)
  Sender: FDA-Public Use
  Company Number: ADR-2012-01161

PATIENT
  Age: 69 Year
  Sex: Male

DRUGS (1)
  1. GABALON INTRATHECAL (BACLOFEN INJECTION) [Suspect]

REACTIONS (14)
  - Altered state of consciousness [None]
  - Dehydration [None]
  - Shock [None]
  - Dysphagia [None]
  - Cerebral infarction [None]
  - Colitis [None]
  - Epistaxis [None]
  - Pneumonia aspiration [None]
  - Pneumoconiosis [None]
  - Disseminated tuberculosis [None]
  - Respiratory failure [None]
  - Bedridden [None]
  - Emphysema [None]
  - Hypophagia [None]
